FAERS Safety Report 7660223-5 (Version None)
Quarter: 2011Q3

REPORT INFORMATION
  Report Type: 
  Country: None (occurrence: None)
  Receive Date: 20110805
  Receipt Date: 20110803
  Transmission Date: 20111222
  Serious: Yes (Death, Hospitalization, Other)
  Sender: FDA-Public Use
  Company Number: PHHY2008AU24911

PATIENT
  Sex: Female

DRUGS (7)
  1. CLOZAPINE [Suspect]
     Dosage: 450 MG, UNK
     Route: 048
     Dates: start: 20040830
  2. CLOZAPINE [Suspect]
     Dosage: 325 MG, UNK
  3. CLOZAPINE [Suspect]
     Dosage: 125 MG, TWICE DAILY
  4. ATROVENT [Concomitant]
     Dosage: UNK UKN, QID
  5. CLOZAPINE [Suspect]
     Dosage: 200 MG, UNK
     Route: 048
     Dates: start: 20040830
  6. VENTOLIN [Concomitant]
     Dosage: UNK UKN, QID
  7. CLOZAPINE [Suspect]
     Dosage: 225 MG, 100 MG MORNING, 125 MG NIGHT

REACTIONS (5)
  - PNEUMONIA [None]
  - MALAISE [None]
  - LOWER RESPIRATORY TRACT INFECTION [None]
  - TERTIARY SYPHILIS [None]
  - CHRONIC OBSTRUCTIVE PULMONARY DISEASE [None]
